FAERS Safety Report 7321127-0 (Version None)
Quarter: 2011Q1

REPORT INFORMATION
  Report Type: 
  Country: None (occurrence: None)
  Receive Date: 20110228
  Receipt Date: 20110218
  Transmission Date: 20110831
  Serious: Yes (Other)
  Sender: FDA-Public Use
  Company Number: US-JNJFOC-20110206792

PATIENT
  Sex: Male
  Weight: 83.92 kg

DRUGS (1)
  1. LEVAQUIN [Suspect]
     Indication: THROMBOSIS
     Route: 048

REACTIONS (4)
  - TENDON DISORDER [None]
  - JOINT CREPITATION [None]
  - JOINT INJURY [None]
  - JOINT RANGE OF MOTION DECREASED [None]
